FAERS Safety Report 17907042 (Version 1)
Quarter: 2020Q2

REPORT INFORMATION
  Report Type: Spontaneous
  Country: US (occurrence: US)
  Receive Date: 20200617
  Receipt Date: 20200617
  Transmission Date: 20200714
  Serious: Yes (Hospitalization)
  Sender: FDA-Public Use
  Company Number: US-PFIZER INC-2020048805

PATIENT
  Sex: Male
  Weight: 115.21 kg

DRUGS (3)
  1. REVATIO [Suspect]
     Active Substance: SILDENAFIL CITRATE
     Indication: PULMONARY HYPERTENSION
     Dosage: 40 MG, 3X/DAY
     Route: 048
  2. LASIX [Concomitant]
     Active Substance: FUROSEMIDE
     Dosage: 40 MG
  3. LASIX [Concomitant]
     Active Substance: FUROSEMIDE
     Dosage: 80 MG

REACTIONS (4)
  - Generalised oedema [Recovering/Resolving]
  - Pneumonia [Unknown]
  - Pericardial effusion [Unknown]
  - Off label use [Unknown]
